FAERS Safety Report 5584443-9 (Version None)
Quarter: 2008Q1

REPORT INFORMATION
  Report Type: 
  Country: None (occurrence: None)
  Receive Date: 20080108
  Receipt Date: 20080103
  Transmission Date: 20080703
  Serious: Yes (Death)
  Sender: FDA-Public Use
  Company Number: FR-WYE-G00835008

PATIENT
  Age: 72 Year
  Sex: Male

DRUGS (7)
  1. ADVIL LIQUI-GELS [Suspect]
     Dosage: UNKNOWN
     Route: 048
     Dates: start: 20071203
  2. DOLIPRANE [Suspect]
     Dosage: UNKNOWN
     Route: 048
     Dates: start: 20071203
  3. LAROXYL [Concomitant]
     Dosage: UNKNOWN
     Route: 048
  4. LYRICA [Concomitant]
     Dosage: UNKNOWN
     Route: 048
  5. LYSANXIA [Concomitant]
     Dosage: UNKNOWN
     Route: 048
  6. IZILOX [Suspect]
     Dosage: UNKNOWN
     Route: 048
     Dates: start: 20071203
  7. DEROXAT [Concomitant]
     Dosage: UNKNOWN
     Route: 048

REACTIONS (1)
  - SUDDEN DEATH [None]
